FAERS Safety Report 13925409 (Version 2)
Quarter: 2020Q1

REPORT INFORMATION
  Report Type: Spontaneous
  Country: US (occurrence: US)
  Receive Date: 20170831
  Receipt Date: 20200103
  Transmission Date: 20200409
  Serious: Yes (Death, Hospitalization, Other)
  Sender: FDA-Public Use
  Company Number: US-JNJFOC-20170821522

PATIENT

DRUGS (1)
  1. TOPIRAMATE. [Suspect]
     Active Substance: TOPIRAMATE
     Indication: MIGRAINE PROPHYLAXIS
     Route: 048

REACTIONS (7)
  - Ischaemic stroke [Fatal]
  - Overdose [Fatal]
  - Myocardial infarction [Fatal]
  - Transient ischaemic attack [Fatal]
  - Myocardial ischaemia [Fatal]
  - Haemorrhagic stroke [Fatal]
  - Angina unstable [Fatal]
